FAERS Safety Report 6275022-9 (Version None)
Quarter: 2009Q3

REPORT INFORMATION
  Report Type: 
  Country: None (occurrence: None)
  Receive Date: 20090721
  Receipt Date: 20090720
  Transmission Date: 20100115
  Serious: Yes (Other)
  Sender: FDA-Public Use
  Company Number: US-BAYER-200920437NA

PATIENT
  Age: 31 Year
  Sex: Male

DRUGS (4)
  1. LEVITRA [Suspect]
     Indication: ERECTILE DYSFUNCTION
  2. PROZAC [Concomitant]
  3. KLONOPIN [Concomitant]
  4. PROPECIA [Concomitant]

REACTIONS (1)
  - CHROMATOPSIA [None]
